FAERS Safety Report 10288367 (Version 2)
Quarter: 2014Q3

REPORT INFORMATION
  Report Type: Spontaneous
  Country: JP (occurrence: JP)
  Receive Date: 20140709
  Receipt Date: 20140709
  Transmission Date: 20150326
  Serious: Yes (Life-Threatening, Hospitalization, Other)
  Sender: FDA-Public Use
  Company Number: JP-PFIZER INC-2014167396

PATIENT
  Age: 95 Year
  Sex: Female
  Weight: 36.3 kg

DRUGS (2)
  1. LYRICA [Suspect]
     Active Substance: PREGABALIN
     Indication: LUMBAR SPINAL STENOSIS
     Dosage: 25 MG, 2X/DAY
     Route: 048
     Dates: start: 20140421, end: 20140430
  2. LYRICA [Suspect]
     Active Substance: PREGABALIN
     Dosage: 50 MG, 2X/DAY
     Route: 048
     Dates: start: 20140501, end: 20140616

REACTIONS (7)
  - Pulmonary hypertension [Recovering/Resolving]
  - Pleural effusion [Recovering/Resolving]
  - Cardiac failure [Recovering/Resolving]
  - Pyrexia [Recovered/Resolved]
  - Cough [Unknown]
  - Pulmonary congestion [Recovering/Resolving]
  - Dyspnoea exertional [Recovered/Resolved]

NARRATIVE: CASE EVENT DATE: 20140502
